FAERS Safety Report 23940039 (Version 2)
Quarter: 2024Q3

REPORT INFORMATION
  Report Type: Spontaneous
  Country: US (occurrence: US)
  Receive Date: 20240605
  Receipt Date: 20240806
  Transmission Date: 20241017
  Serious: Yes (Other)
  Sender: JOHNSON AND JOHNSON
  Company Number: US-JNJFOC-20240583914

PATIENT
  Age: 90 Year
  Sex: Male
  Weight: 70.37 kg

DRUGS (3)
  1. ERLEADA [Suspect]
     Active Substance: APALUTAMIDE
     Indication: Hormone-dependent prostate cancer
     Route: 048
     Dates: start: 20231215, end: 20240424
  2. DEGARELIX [Concomitant]
     Active Substance: DEGARELIX
     Dates: start: 20220415
  3. DENOSUMAB [Concomitant]
     Active Substance: DENOSUMAB
     Indication: Metastatic neoplasm
     Dates: start: 20231218

REACTIONS (3)
  - Rash [Unknown]
  - Rash [Recovering/Resolving]
  - Rash erythematous [Recovering/Resolving]

NARRATIVE: CASE EVENT DATE: 20240124
